FAERS Safety Report 21935615 (Version 1)
Quarter: 2023Q1

REPORT INFORMATION
  Report Type: Spontaneous
  Country: BG (occurrence: BG)
  Receive Date: 20230201
  Receipt Date: 20230201
  Transmission Date: 20230418
  Serious: Yes (Other)
  Sender: FDA-Public Use
  Company Number: BG-002147023-NVSC2023BG019646

PATIENT
  Age: 67 Year
  Sex: Female

DRUGS (1)
  1. KISQALI [Suspect]
     Active Substance: RIBOCICLIB
     Indication: Breast cancer
     Dosage: 200 MG, TID
     Route: 048
     Dates: start: 202111

REACTIONS (6)
  - Cardiac failure [Recovered/Resolved]
  - Cardiac asthma [Recovered/Resolved]
  - Ejection fraction decreased [Recovered/Resolved]
  - Blood urea increased [Recovered/Resolved]
  - Chronic kidney disease [Recovered/Resolved]
  - Anaemia [Recovered/Resolved]

NARRATIVE: CASE EVENT DATE: 20220401
